APPROVED DRUG PRODUCT: ALVAIZ
Active Ingredient: ELTROMBOPAG CHOLINE
Strength: EQ 9MG BASE
Dosage Form/Route: TABLET;ORAL
Application: N216774 | Product #001
Applicant: TEVA PHARMACEUTICALS INC
Approved: Nov 29, 2023 | RLD: Yes | RS: No | Type: RX

PATENTS:
Patent 11072586 | Expires: Nov 5, 2038
Patent 11072586 | Expires: Nov 5, 2038
Patent 11072586 | Expires: Nov 5, 2038